FAERS Safety Report 8533599-4 (Version None)
Quarter: 2012Q3

REPORT INFORMATION
  Report Type: 
  Country: None (occurrence: None)
  Receive Date: 20120724
  Receipt Date: 20120713
  Transmission Date: 20120928
  Serious: Yes (Hospitalization, Other)
  Sender: FDA-Public Use
  Company Number: US-JNJFOC-20120413887

PATIENT
  Sex: Female
  Weight: 53.98 kg

DRUGS (38)
  1. LORTAB [Concomitant]
     Indication: PAIN
     Dosage: AS NEEDED (HALF PILL)
     Route: 048
  2. NEXIUM [Concomitant]
     Indication: GASTRIC DISORDER
     Route: 048
  3. TYLENOL [Concomitant]
     Indication: PRODUCT USED FOR UNKNOWN INDICATION
     Route: 065
  4. AN UNKNOWN MEDICATION [Concomitant]
     Indication: PRODUCT USED FOR UNKNOWN INDICATION
     Route: 065
  5. LISINOPRIL [Concomitant]
     Indication: PRODUCT USED FOR UNKNOWN INDICATION
     Route: 065
  6. XANAX [Concomitant]
     Indication: NEUROPATHY PERIPHERAL
     Route: 065
  7. PREMARIN [Concomitant]
     Indication: DRY SKIN
     Route: 067
  8. ALBUTEROL SULPHATE [Concomitant]
     Indication: DYSPNOEA
     Route: 055
  9. NITROGLYCERIN [Concomitant]
     Indication: CARDIAC DISORDER
     Route: 061
  10. SALINE NOSE SPRAY [Concomitant]
     Indication: PRODUCT USED FOR UNKNOWN INDICATION
     Route: 045
  11. REFRESH EYE DROPS [Concomitant]
     Indication: PRODUCT USED FOR UNKNOWN INDICATION
     Route: 065
  12. CALCIUM CARBONATE [Concomitant]
     Indication: PRODUCT USED FOR UNKNOWN INDICATION
     Route: 065
  13. CHOLESTYRAMINE [Concomitant]
     Indication: PRODUCT USED FOR UNKNOWN INDICATION
     Route: 065
  14. XANAX [Concomitant]
     Indication: DEPRESSION
     Route: 065
  15. ZOLOFT [Concomitant]
     Indication: DEPRESSION
     Route: 048
  16. VITAMIN B-12 [Concomitant]
     Route: 065
  17. LUTEIN [Concomitant]
     Indication: PRODUCT USED FOR UNKNOWN INDICATION
     Route: 065
  18. WELCHOL [Concomitant]
     Route: 048
  19. LEVAQUIN [Suspect]
     Indication: LOBAR PNEUMONIA
     Dosage: PRESCRIBED FOR 10 DAYS
     Route: 048
     Dates: start: 20110624, end: 20110701
  20. XANAX [Concomitant]
     Indication: ANXIETY
     Route: 065
  21. LORTAB [Concomitant]
     Dosage: AS NEEDED (HALF PILL)
     Route: 048
  22. NITROSTAT [Concomitant]
     Indication: CARDIAC DISORDER
     Route: 048
  23. FISH OIL [Concomitant]
     Route: 048
  24. VITAMIN D [Concomitant]
     Dosage: 400 UNITS
     Route: 065
  25. CRESTOR [Concomitant]
     Indication: CARDIAC DISORDER
  26. LOPRESSOR [Concomitant]
     Indication: CARDIAC DISORDER
     Route: 048
  27. ASPIRIN [Concomitant]
     Route: 065
  28. DIFLUCAN [Concomitant]
     Indication: PRODUCT USED FOR UNKNOWN INDICATION
     Route: 065
  29. PLAVIX [Concomitant]
     Indication: PRODUCT USED FOR UNKNOWN INDICATION
     Route: 065
  30. THYROID REPLACMENT [Concomitant]
     Indication: HYPOTHYROIDISM
     Route: 065
  31. LEVOTHYROXINE SODIUM [Concomitant]
     Indication: HYPOTHYROIDISM
     Route: 065
  32. LACTULOSE [Concomitant]
     Indication: CONSTIPATION
     Route: 065
  33. BACTROBAN [Concomitant]
     Indication: LACERATION
     Route: 061
  34. MULTIPLE VITAMIN [Concomitant]
     Route: 065
  35. OS-CAL + D [Concomitant]
     Route: 065
  36. MULTI-VITAMINS [Concomitant]
     Indication: PRODUCT USED FOR UNKNOWN INDICATION
     Route: 065
  37. NAPROSYN [Concomitant]
     Indication: PRODUCT USED FOR UNKNOWN INDICATION
     Route: 065
  38. WELCHOL [Concomitant]
     Indication: PRODUCT USED FOR UNKNOWN INDICATION
     Route: 048

REACTIONS (15)
  - CARPAL TUNNEL SYNDROME [None]
  - BACK PAIN [None]
  - HEART RATE IRREGULAR [None]
  - TENDON PAIN [None]
  - OEDEMA PERIPHERAL [None]
  - TENDON RUPTURE [None]
  - BURSITIS [None]
  - BALANCE DISORDER [None]
  - TENDONITIS [None]
  - ARTHRITIS [None]
  - CYANOSIS [None]
  - FEELING ABNORMAL [None]
  - FATIGUE [None]
  - GAIT DISTURBANCE [None]
  - NERVOUS SYSTEM DISORDER [None]
